FAERS Safety Report 8014896-8 (Version None)
Quarter: 2011Q4

REPORT INFORMATION
  Report Type: 
  Country: None (occurrence: None)
  Receive Date: 20111229
  Receipt Date: 20111201
  Transmission Date: 20120403
  Serious: Yes (Other)
  Sender: FDA-Public Use
  Company Number: JP-BAXTER-2011BH038393

PATIENT
  Age: 3 Year
  Sex: Male
  Weight: 11 kg

DRUGS (5)
  1. EPINASTINE HYDROCHLORIDE [Concomitant]
     Indication: DERMATITIS ATOPIC
     Route: 048
  2. ADVATE [Suspect]
     Indication: FACTOR VIII DEFICIENCY
     Route: 042
     Dates: start: 20070418, end: 20071017
  3. ADVATE [Suspect]
     Route: 042
     Dates: start: 20071018, end: 20080417
  4. ONON [Concomitant]
     Indication: HYPERSENSITIVITY
     Route: 048
  5. ADVATE [Suspect]
     Route: 042
     Dates: start: 20080418, end: 20081017

REACTIONS (1)
  - FEBRILE CONVULSION [None]
